FAERS Safety Report 8368846-5 (Version None)
Quarter: 2012Q2

REPORT INFORMATION
  Report Type: 
  Country: None (occurrence: None)
  Receive Date: 20120518
  Receipt Date: 20120514
  Transmission Date: 20120825
  Serious: Yes (Other)
  Sender: FDA-Public Use
  Company Number: DE-BRISTOL-MYERS SQUIBB COMPANY-16565137

PATIENT
  Age: 35 Year
  Sex: Female

DRUGS (8)
  1. MEPERIDINE HCL [Suspect]
     Indication: PAIN
     Dates: start: 20091013, end: 20100613
  2. MELPERONE HCL [Suspect]
     Indication: DEPRESSION
     Dosage: 1DF=3X1 TABLET
     Route: 048
     Dates: end: 20100218
  3. HYDROXYUREA [Suspect]
     Indication: SICKLE CELL ANAEMIA
     Route: 048
     Dates: start: 20091013, end: 20100218
  4. VALDOXAN [Suspect]
     Indication: DEPRESSION
     Dosage: FROM 7TH  UNTIL 16.3TH GESTATIONAL WEEK (18-FEB-2010)
     Route: 048
     Dates: end: 20100218
  5. PRILOSEC [Concomitant]
     Indication: GASTRITIS PROPHYLAXIS
     Dosage: 0TH UNTIL THE 18TH GESTATIONAL WEEK
     Route: 048
  6. FOLIC ACID [Concomitant]
     Indication: VITAMIN SUPPLEMENTATION
     Dosage: FROM THE 20TH UNTIL THE 34.4TH GESTATIONAL WEEK
     Route: 048
  7. MORPHINE SULFATE [Suspect]
     Indication: PAIN
     Dosage: INCREASE FROM 40 TO 300MG/D  20TH GW
     Route: 048
     Dates: start: 20091013, end: 20100613
  8. HALDOL [Suspect]
     Indication: DEPRESSION
     Dosage: 2X5DROPS PER DAY GIVEN FROM 7TH  UNTIL 16.3TH GESTATIONAL WEEK
     Route: 048

REACTIONS (9)
  - SICKLE CELL ANAEMIA WITH CRISIS [None]
  - POLYHYDRAMNIOS [None]
  - LIVE BIRTH [None]
  - INFLAMMATORY MARKER INCREASED [None]
  - PYREXIA [None]
  - PREGNANCY [None]
  - PREMATURE BABY [None]
  - CAESAREAN SECTION [None]
  - MATERNAL EXPOSURE DURING PREGNANCY [None]
